FAERS Safety Report 8345685-2 (Version None)
Quarter: 2012Q2

REPORT INFORMATION
  Report Type: 
  Country: None (occurrence: None)
  Receive Date: 20120508
  Receipt Date: 20120418
  Transmission Date: 20120825
  Serious: Yes (Death, Other)
  Sender: FDA-Public Use
  Company Number: PHHO2012NL006743

PATIENT

DRUGS (1)
  1. IMATINIB MESYLATE [Suspect]
     Dosage: 800 MG, QD
     Route: 030

REACTIONS (2)
  - CONDUCTION DISORDER [None]
  - DRUG RESISTANCE [None]
